FAERS Safety Report 9475826 (Version 1)
Quarter: 2013Q3

REPORT INFORMATION
  Report Type: Spontaneous
  Country: US (occurrence: US)
  Receive Date: 20130826
  Receipt Date: 20130826
  Transmission Date: 20140515
  Serious: No
  Sender: FDA-Public Use
  Company Number: US-PFIZER INC-2013244911

PATIENT
  Age: 7 Year
  Sex: Male

DRUGS (5)
  1. QUILLIVANT XR [Suspect]
     Dosage: 4 ML DAILY
     Dates: start: 2013, end: 2013
  2. QUILLIVANT XR [Suspect]
     Dosage: 8 ML DAILY
     Dates: start: 2013, end: 2013
  3. QUILLIVANT XR [Suspect]
     Dosage: 10 ML DAILY
     Dates: start: 2013
  4. TENEX [Suspect]
     Dosage: 1 MG, 2X/DAY
  5. CLONIDINE [Suspect]
     Dosage: 0.2 MG DAILY

REACTIONS (2)
  - Alopecia [Unknown]
  - Rash [Unknown]
